FAERS Safety Report 16491666 (Version 1)
Quarter: 2019Q2

REPORT INFORMATION
  Report Type: Spontaneous
  Country: TR (occurrence: TR)
  Receive Date: 20190628
  Receipt Date: 20190628
  Transmission Date: 20190711
  Serious: Yes (Death)
  Sender: FDA-Public Use
  Company Number: TR-AMREGENT-20191314

PATIENT
  Age: 70 Year
  Sex: Female

DRUGS (4)
  1. DILTIAZEM. [Concomitant]
     Active Substance: DILTIAZEM
     Dosage: UNKNOWN
     Route: 065
  2. FERINJECT [Suspect]
     Active Substance: FERRIC CARBOXYMALTOSE
     Dosage: FIRST DOSE (500 MG)
     Route: 041
  3. COUMADIN [Concomitant]
     Active Substance: WARFARIN SODIUM
     Dosage: UNKNOWN
     Route: 065
  4. KANDESARTAN [Concomitant]
     Dosage: UNKNOWN
     Route: 065

REACTIONS (1)
  - Cardiac arrest [Fatal]
